FAERS Safety Report 8011978-1 (Version None)
Quarter: 2011Q4

REPORT INFORMATION
  Report Type: 
  Country: None (occurrence: None)
  Receive Date: 20111228
  Receipt Date: 20111219
  Transmission Date: 20120403
  Serious: Yes (Other)
  Sender: FDA-Public Use
  Company Number: US-VIIV HEALTHCARE LIMITED-A0959020A

PATIENT
  Age: 30 Year
  Sex: Female

DRUGS (8)
  1. EPIVIR [Suspect]
     Indication: ANTIRETROVIRAL THERAPY
     Route: 048
     Dates: end: 20110621
  2. COCAINE [Concomitant]
  3. INTELENCE [Suspect]
     Indication: ANTIRETROVIRAL THERAPY
     Route: 048
     Dates: end: 20110621
  4. ZIAGEN [Suspect]
     Indication: ANTIRETROVIRAL THERAPY
     Route: 048
     Dates: end: 20110621
  5. TRUVADA [Suspect]
     Indication: ANTIRETROVIRAL THERAPY
     Dosage: 1TAB SINGLE DOSE
     Route: 048
     Dates: start: 20110621
  6. BACTRIM [Concomitant]
  7. REYATAZ [Suspect]
     Indication: ANTIRETROVIRAL THERAPY
     Dosage: 300MGD PER DAY
     Route: 048
     Dates: start: 20110621
  8. NORVIR [Suspect]
     Indication: ANTIRETROVIRAL THERAPY
     Dosage: 100MGD PER DAY
     Route: 048
     Dates: start: 20110621

REACTIONS (7)
  - ABORTION SPONTANEOUS [None]
  - PYREXIA [None]
  - MATERNAL EXPOSURE DURING PREGNANCY [None]
  - RASH [None]
  - VAGINAL HAEMORRHAGE [None]
  - CERVIX OPERATION [None]
  - NORMAL LABOUR [None]
